FAERS Safety Report 4990370-8 (Version None)
Quarter: 2006Q2

REPORT INFORMATION
  Report Type: 
  Country: None (occurrence: None)
  Receive Date: 20060427
  Receipt Date: 20060418
  Transmission Date: 20061013
  Serious: Yes (Life-Threatening, Hospitalization, Other)
  Sender: FDA-Public Use
  Company Number: HQWYE875019APR06

PATIENT
  Age: 46 Year
  Sex: Male

DRUGS (10)
  1. RAPAMUNE [Suspect]
     Dosage: 3 MG
     Dates: start: 20050530, end: 20050921
  2. PREDNISOLONE [Concomitant]
  3. OMEPRAZOLE [Concomitant]
  4. ATORVASTATIN CALCIUM [Concomitant]
  5. SERTRALINE [Concomitant]
  6. CALCITRIOL [Concomitant]
  7. DIGOXIN [Concomitant]
  8. NEOTIGASON (ACITRETIN) [Concomitant]
  9. GLUCOSAMINE (GLUCOSAMINE) [Concomitant]
  10. FERROGRADUMET (FERROUS SULFATE) [Concomitant]

REACTIONS (1)
  - INTERSTITIAL LUNG DISEASE [None]
